FAERS Safety Report 15958614 (Version 1)
Quarter: 2019Q1

REPORT INFORMATION
  Report Type: Spontaneous
  Country: US (occurrence: US)
  Receive Date: 20190213
  Receipt Date: 20190213
  Transmission Date: 20190417
  Serious: Yes (Other)
  Sender: FDA-Public Use
  Company Number: US-PURDUE PHARMA-USA-2018-0145200

PATIENT
  Sex: Female
  Weight: 99.77 kg

DRUGS (4)
  1. BUPRENORPHINE TRANSDERMAL PATCH (SIMILAR TO NDA 21-306) [Suspect]
     Active Substance: BUPRENORPHINE
     Dosage: 15 MCG/HR, WEEKLY
     Route: 062
     Dates: start: 20180417
  2. LAMICTAL [Concomitant]
     Active Substance: LAMOTRIGINE
     Indication: PAIN
     Dosage: 50 MG, BID
     Route: 065
     Dates: start: 20180412
  3. BUPRENORPHINE TRANSDERMAL PATCH (SIMILAR TO NDA 21-306) [Suspect]
     Active Substance: BUPRENORPHINE
     Indication: NEURALGIA
     Dosage: 15 MCG/HR, WEEKLY
     Route: 062
  4. LAMICTAL [Concomitant]
     Active Substance: LAMOTRIGINE
     Indication: DEPRESSION

REACTIONS (8)
  - Anxiety [Unknown]
  - Oral mucosal blistering [Recovered/Resolved]
  - Drug effect decreased [Unknown]
  - Scar [Not Recovered/Not Resolved]
  - Rash [Not Recovered/Not Resolved]
  - Application site erythema [Not Recovered/Not Resolved]
  - Blister [Not Recovered/Not Resolved]
  - Application site pruritus [Not Recovered/Not Resolved]

NARRATIVE: CASE EVENT DATE: 2018
